FAERS Safety Report 12900206 (Version 1)
Quarter: 2016Q4

REPORT INFORMATION
  Report Type: Spontaneous
  Country: US (occurrence: US)
  Receive Date: 20161101
  Receipt Date: 20161101
  Transmission Date: 20170207
  Serious: Yes (Hospitalization, Disabling, Other)
  Sender: FDA-Public Use
  Company Number: US-009507513-1003USA00724

PATIENT
  Sex: Female
  Weight: 53.52 kg

DRUGS (6)
  1. PREMARIN [Concomitant]
     Active Substance: ESTROGENS, CONJUGATED
     Indication: HORMONE REPLACEMENT THERAPY
     Dosage: UNK, UNKNOWN
     Route: 065
     Dates: start: 1990, end: 20020802
  2. FOSAMAX [Suspect]
     Active Substance: ALENDRONATE SODIUM
     Indication: OSTEOPOROSIS
     Dosage: 70 MG, UNKNOWN
     Route: 048
     Dates: start: 20041116, end: 200808
  3. FOSAMAX PLUS D [Suspect]
     Active Substance: ALENDRONATE SODIUM\CHOLECALCIFEROL
     Indication: OSTEOPENIA
     Dosage: 70 MG, QW
     Route: 048
     Dates: start: 20051205, end: 20081201
  4. PROVERA [Concomitant]
     Active Substance: MEDROXYPROGESTERONE ACETATE
     Indication: HORMONE REPLACEMENT THERAPY
     Dosage: UNK, UNKNOWN
     Route: 065
     Dates: start: 1990, end: 20020802
  5. FOSAMAX [Suspect]
     Active Substance: ALENDRONATE SODIUM
     Indication: PROPHYLAXIS
     Dosage: 10 MG, UNK
     Route: 048
     Dates: start: 199609
  6. SYNTHROID [Concomitant]
     Active Substance: LEVOTHYROXINE SODIUM
     Indication: HYPOTHYROIDISM
     Dosage: UNK, UNKNOWN
     Route: 065
     Dates: start: 1986

REACTIONS (78)
  - Low turnover osteopathy [Unknown]
  - Femur fracture [Not Recovered/Not Resolved]
  - Osteoporosis [Unknown]
  - Stress fracture [Unknown]
  - Arthritis [Not Recovered/Not Resolved]
  - Fibroma [Unknown]
  - Intervertebral disc degeneration [Unknown]
  - Osteoarthritis [Unknown]
  - Deep vein thrombosis [Unknown]
  - Palpitations [Unknown]
  - Fracture nonunion [Unknown]
  - Osteopenia [Unknown]
  - Stress fracture [Unknown]
  - Femur fracture [Not Recovered/Not Resolved]
  - Joint dislocation [Unknown]
  - Extremity contracture [Unknown]
  - Femur fracture [Unknown]
  - Hypercholesterolaemia [Not Recovered/Not Resolved]
  - Pain in extremity [Not Recovered/Not Resolved]
  - Computerised tomogram coronary artery abnormal [Unknown]
  - Food allergy [Unknown]
  - Hypotension [Unknown]
  - Insomnia [Unknown]
  - Constipation [Not Recovered/Not Resolved]
  - Myalgia [Not Recovered/Not Resolved]
  - Hyperlipidaemia [Not Recovered/Not Resolved]
  - Mitral valve incompetence [Unknown]
  - Gait disturbance [Unknown]
  - Intervertebral disc disorder [Unknown]
  - Upper motor neurone lesion [Unknown]
  - Limb injury [Unknown]
  - Femur fracture [Recovering/Resolving]
  - Dermatitis contact [Unknown]
  - Fracture nonunion [Unknown]
  - Cardiac murmur [Unknown]
  - Coronary artery disease [Unknown]
  - Uterine disorder [Unknown]
  - Uterine polyp [Unknown]
  - Foot deformity [Unknown]
  - Foot deformity [Unknown]
  - Varicose vein [Unknown]
  - Intervertebral disc protrusion [Unknown]
  - Pain in extremity [Recovered/Resolved]
  - Urinary tract infection [Unknown]
  - Muscle spasms [Unknown]
  - Drug hypersensitivity [Unknown]
  - Lumbar radiculopathy [Unknown]
  - Scoliosis [Unknown]
  - Nausea [Unknown]
  - Pruritus allergic [Unknown]
  - Osteochondroma [Unknown]
  - Hiatus hernia [Unknown]
  - Spondylolisthesis [Unknown]
  - Back disorder [Unknown]
  - Bronchitis [Unknown]
  - Palpitations [Unknown]
  - Postmenopausal haemorrhage [Unknown]
  - Anaemia [Unknown]
  - Oesophagitis [Unknown]
  - Nodule [Unknown]
  - Dermatitis allergic [Unknown]
  - Increased tendency to bruise [Unknown]
  - Osteochondroma [Unknown]
  - Kyphosis [Unknown]
  - Grief reaction [Unknown]
  - Haemorrhoids [Not Recovered/Not Resolved]
  - Gastrooesophageal reflux disease [Not Recovered/Not Resolved]
  - Muscular weakness [Unknown]
  - Fall [Unknown]
  - Uterine leiomyoma [Unknown]
  - Fatigue [Unknown]
  - Bronchitis [Unknown]
  - Angiopathy [Unknown]
  - Diverticulum [Unknown]
  - Blood creatine phosphokinase increased [Unknown]
  - Herpes zoster [Unknown]
  - Exostosis [Unknown]
  - Dizziness [Unknown]

NARRATIVE: CASE EVENT DATE: 19960906
